FAERS Safety Report 6405474-2 (Version None)
Quarter: 2009Q4

REPORT INFORMATION
  Report Type: 
  Country: None (occurrence: None)
  Receive Date: 20091019
  Receipt Date: 20090928
  Transmission Date: 20100525
  Serious: Yes (Other)
  Sender: FDA-Public Use
  Company Number: US-ELI_LILLY_AND_COMPANY-US200910003817

PATIENT
  Sex: Male

DRUGS (3)
  1. HUMALOG [Suspect]
  2. HUMALOG [Suspect]
     Dosage: UNK, UNKNOWN
  3. LASIX [Concomitant]

REACTIONS (8)
  - BLINDNESS [None]
  - DEVICE MISUSE [None]
  - EYE LASER SURGERY [None]
  - MACULAR DEGENERATION [None]
  - SURGICAL FAILURE [None]
  - VISUAL FIELD DEFECT [None]
  - VISUAL IMPAIRMENT [None]
  - WRONG TECHNIQUE IN DRUG USAGE PROCESS [None]
